FAERS Safety Report 18660207 (Version 1)
Quarter: 2020Q4

REPORT INFORMATION
  Report Type: Other
  Country: CA (occurrence: CA)
  Receive Date: 20201223
  Receipt Date: 20201223
  Transmission Date: 20210114
  Serious: No
  Sender: FDA-Public Use
  Company Number: CA-LUPIN PHARMACEUTICALS INC.-2020-08647

PATIENT
  Age: 78 Year
  Sex: Female

DRUGS (1)
  1. CEPHALEXIN. [Suspect]
     Active Substance: CEPHALEXIN
     Indication: ORAL INFECTION
     Dosage: UNK UNK, QID
     Route: 048

REACTIONS (2)
  - Abdominal pain [Unknown]
  - Diarrhoea [Unknown]
